APPROVED DRUG PRODUCT: PROPULSID QUICKSOLV
Active Ingredient: CISAPRIDE MONOHYDRATE
Strength: EQ 20MG BASE
Dosage Form/Route: TABLET, ORALLY DISINTEGRATING;ORAL
Application: N020767 | Product #001
Applicant: JANSSEN PHARMACEUTICA PRODUCTS LP
Approved: Nov 7, 1997 | RLD: No | RS: No | Type: DISCN